FAERS Safety Report 23889638 (Version 1)
Quarter: 2024Q2

REPORT INFORMATION
  Report Type: Spontaneous
  Country: CN (occurrence: CN)
  Receive Date: 20240523
  Receipt Date: 20240523
  Transmission Date: 20240716
  Serious: Yes (Other)
  Sender: FDA-Public Use
  Company Number: CN-PFIZER INC-PV202400066999

PATIENT
  Age: 56 Year
  Sex: Male

DRUGS (2)
  1. LORLATINIB [Suspect]
     Active Substance: LORLATINIB
     Indication: Lung adenocarcinoma
     Dosage: UNK, CYCLIC
     Dates: start: 202105
  2. LORLATINIB [Suspect]
     Active Substance: LORLATINIB
     Dosage: UNK, CYCLIC
     Dates: start: 202106

REACTIONS (4)
  - Pyrexia [Unknown]
  - Pleural effusion [Unknown]
  - Pleural thickening [Unknown]
  - Neoplasm progression [Unknown]
